FAERS Safety Report 20886794 (Version 1)
Quarter: 2022Q2

REPORT INFORMATION
  Report Type: Spontaneous
  Country: US (occurrence: US)
  Receive Date: 20220528
  Receipt Date: 20220528
  Transmission Date: 20220721
  Serious: Yes (Other)
  Sender: FDA-Public Use
  Company Number: US-SA-SAC20220524002195

PATIENT
  Age: 65 Year
  Sex: Male

DRUGS (2)
  1. ZANTAC [Suspect]
     Active Substance: RANITIDINE HYDROCHLORIDE
     Indication: Gastric ulcer
     Dosage: 150 MG; QD
     Route: 065
     Dates: start: 199101
  2. ZANTAC [Suspect]
     Active Substance: RANITIDINE HYDROCHLORIDE
     Dosage: 300 MG; QD
     Route: 065
     Dates: end: 200301

REACTIONS (2)
  - Gastric cancer stage I [Unknown]
  - Prostate cancer stage I [Unknown]

NARRATIVE: CASE EVENT DATE: 20050101
